FAERS Safety Report 23773384 (Version 2)
Quarter: 2024Q2

REPORT INFORMATION
  Report Type: Report from Study
  Country: JP (occurrence: None)
  Receive Date: 20240423
  Receipt Date: 20240520
  Transmission Date: 20240716
  Serious: Yes (Death)
  Sender: FDA-Public Use
  Company Number: 2024A094225

PATIENT
  Age: 73 Year
  Sex: Male
  Weight: 49 kg

DRUGS (13)
  1. EVUSHELD [Suspect]
     Active Substance: CILGAVIMAB\TIXAGEVIMAB
     Indication: COVID-19 prophylaxis
     Dosage: TIXAGEVIMAB AT 300 MG/CILGAVIMAB AT 300 MG
     Route: 030
     Dates: start: 20231020, end: 20231020
  2. NEXIUM [Concomitant]
     Active Substance: ESOMEPRAZOLE MAGNESIUM
     Indication: Prophylaxis
     Dosage: DOSE UNKNOWN
     Route: 048
     Dates: end: 20240305
  3. PANTETHINE [Concomitant]
     Active Substance: PANTETHINE
     Indication: Prophylaxis
     Dosage: DOSE UNKNOWN
     Route: 048
  4. MAGNESIUM OXIDE [Concomitant]
     Active Substance: MAGNESIUM OXIDE
     Indication: Prophylaxis
     Dosage: DOSE UNKNOWN
     Route: 048
  5. LOXOPROFEN SODIUM [Concomitant]
     Active Substance: LOXOPROFEN SODIUM
     Indication: Prophylaxis
     Dosage: DOSE UNKNOWN
     Route: 048
     Dates: end: 20240130
  6. AMITIZA [Concomitant]
     Active Substance: LUBIPROSTONE
     Indication: Constipation
     Dosage: DOSE UNKNOWN
     Route: 048
  7. OXINORM [Concomitant]
     Indication: Cancer pain
     Dosage: DOSE UNKNOWN
     Route: 048
  8. PREDONINE [Concomitant]
     Active Substance: PREDNISOLONE
     Indication: Diffuse large B-cell lymphoma
     Dosage: DOSE UNKNOWN
     Route: 048
     Dates: end: 20240309
  9. RITUXAN [Concomitant]
     Active Substance: RITUXIMAB
     Indication: Diffuse large B-cell lymphoma
     Dosage: DOSE UNKNOWN
     Route: 065
     Dates: end: 20240305
  10. GRANISETRON HYDROCHLORIDE [Concomitant]
     Active Substance: GRANISETRON HYDROCHLORIDE
     Indication: Diffuse large B-cell lymphoma
     Dosage: DOSE UNKNOWN
     Route: 065
     Dates: end: 20240305
  11. ONCOVIN [Concomitant]
     Active Substance: VINCRISTINE SULFATE
     Indication: Diffuse large B-cell lymphoma
     Dosage: DOSE UNKNOWN
     Route: 065
     Dates: end: 20240305
  12. ADRIACIN [Concomitant]
     Active Substance: DOXORUBICIN HYDROCHLORIDE
     Indication: Diffuse large B-cell lymphoma
     Dosage: DOSE UNKNOWN
     Route: 065
     Dates: end: 20240305
  13. CYCLOPHOSPHAMIDE [Concomitant]
     Active Substance: CYCLOPHOSPHAMIDE
     Indication: Diffuse large B-cell lymphoma
     Dosage: DOSE UNKNOWN
     Route: 065
     Dates: end: 20240305

REACTIONS (1)
  - Non-Hodgkin^s lymphoma [Fatal]
